FAERS Safety Report 19072991 (Version 1)
Quarter: 2021Q1

REPORT INFORMATION
  Report Type: Spontaneous
  Country: US (occurrence: US)
  Receive Date: 20210330
  Receipt Date: 20210330
  Transmission Date: 20210420
  Serious: Yes (Disabling)
  Sender: FDA-Public Use
  Company Number: None

PATIENT
  Age: 58 Year
  Sex: Male
  Weight: 94.5 kg

DRUGS (1)
  1. PEROXIE CARE TARTAR CONTROL HEALTHY GUMS BAKING SODA AND PEROXIDE [Suspect]
     Active Substance: SODIUM FLUORIDE
     Indication: DENTAL CARE
     Dosage: ?          OTHER ROUTE:BRUSHING TEETH?
     Dates: end: 20210328

REACTIONS (5)
  - Dermatitis contact [None]
  - Lip dry [None]
  - Condition aggravated [None]
  - Chapped lips [None]
  - Suspected product contamination [None]

NARRATIVE: CASE EVENT DATE: 20210215
